FAERS Safety Report 8932467 (Version 1)
Quarter: 2012Q4

REPORT INFORMATION
  Report Type: Spontaneous
  Country: US (occurrence: None)
  Receive Date: 20121126
  Receipt Date: 20121126
  Transmission Date: 20130627
  Serious: No
  Sender: FDA-Public Use
  Company Number: None

PATIENT
  Age: 76 Year
  Sex: Female
  Weight: 56.7 kg

DRUGS (1)
  1. LEVAQUIN [Suspect]
     Indication: UTI
     Route: 048
     Dates: start: 20121029, end: 20121030

REACTIONS (7)
  - Rash erythematous [None]
  - Rash [None]
  - Rash [None]
  - Joint swelling [None]
  - Skin discolouration [None]
  - Palpitations [None]
  - Burning sensation [None]
